FAERS Safety Report 5316751-0 (Version None)
Quarter: 2007Q2

REPORT INFORMATION
  Report Type: 
  Country: None (occurrence: None)
  Receive Date: 20070501
  Receipt Date: 20070501
  Transmission Date: 20071010
  Serious: Yes (Hospitalization)
  Sender: FDA-Public Use
  Company Number: None

PATIENT
  Sex: Female

DRUGS (12)
  1. POLYSTYRENE 15 MG/ 60 ML [Suspect]
     Indication: HYPERKALAEMIA
     Dosage: 30 MG ONCE DAILY FOR 2 D PO
     Route: 048
     Dates: start: 20070318, end: 20070320
  2. SORBITOL 60 ML [Suspect]
     Dosage: 30 MG TID RECTAL
     Route: 054
  3. PRIMAXIN [Concomitant]
  4. TOBRAMYCIN [Concomitant]
  5. VANCOMYCIN [Concomitant]
  6. BACTRIM [Concomitant]
  7. MORPHINE [Concomitant]
  8. METOPROLOL SUCCINATE [Concomitant]
  9. ASCORBIC ACID [Concomitant]
  10. NICOTINE [Concomitant]
  11. FLUCONAZOLE [Concomitant]
  12. ESOMEPRAZOLE MAGNESIUM [Concomitant]

REACTIONS (1)
  - INTESTINAL ISCHAEMIA [None]
